FAERS Safety Report 8171015-5 (Version None)
Quarter: 2012Q1

REPORT INFORMATION
  Report Type: 
  Country: None (occurrence: None)
  Receive Date: 20120104
  Receipt Date: 20110913
  Transmission Date: 20120608
  Serious: No
  Sender: FDA-Public Use
  Company Number: 2011HGS-002532

PATIENT
  Sex: Female

DRUGS (2)
  1. PREDNISONE [Concomitant]
  2. BENLYSTA [Suspect]
     Indication: SYSTEMIC LUPUS ERYTHEMATOSUS
     Dosage: 10 MG/KG,  INTRAVENOUS DRIP
     Route: 041
     Dates: start: 20110909, end: 20110909

REACTIONS (4)
  - HEART RATE INCREASED [None]
  - NAUSEA [None]
  - ARRHYTHMIA [None]
  - VOMITING [None]
